FAERS Safety Report 21511908 (Version 1)
Quarter: 2022Q4

REPORT INFORMATION
  Report Type: Spontaneous
  Country: AU (occurrence: AU)
  Receive Date: 20221027
  Receipt Date: 20221027
  Transmission Date: 20230112
  Serious: Yes (Other)
  Sender: FDA-Public Use
  Company Number: AU-NOVARTISPH-NVSC2022AU238063

PATIENT
  Age: 76 Year
  Sex: Female

DRUGS (4)
  1. BEOVU [Suspect]
     Active Substance: BROLUCIZUMAB-DBLL
     Indication: Retinal neovascularisation
     Dosage: UNK, QMO
     Route: 031
     Dates: start: 20220811
  2. BEOVU [Suspect]
     Active Substance: BROLUCIZUMAB-DBLL
     Dosage: UNK, QMO
     Route: 031
     Dates: start: 20220915
  3. EYLEA [Concomitant]
     Active Substance: AFLIBERCEPT
     Indication: Retinal neovascularisation
     Dosage: UNK (LEFT EYE) (7-8 WEEKLY)
     Route: 031
     Dates: start: 20200319
  4. ANASTROZOLE [Concomitant]
     Active Substance: ANASTROZOLE
     Indication: Breast cancer
     Dosage: 1 MG, QD
     Route: 065

REACTIONS (7)
  - Vitritis [Recovering/Resolving]
  - Iridocyclitis [Recovering/Resolving]
  - Intraocular pressure decreased [Unknown]
  - Visual acuity reduced [Unknown]
  - Vision blurred [Unknown]
  - Anterior chamber cell [Unknown]
  - Product use in unapproved indication [Unknown]

NARRATIVE: CASE EVENT DATE: 20220930
